FAERS Safety Report 6119486-X (Version None)
Quarter: 2009Q1

REPORT INFORMATION
  Report Type: 
  Country: None (occurrence: None)
  Receive Date: 20090316
  Receipt Date: 20090306
  Transmission Date: 20090719
  Serious: Yes (Hospitalization)
  Sender: FDA-Public Use
  Company Number: A0773164A

PATIENT
  Age: 52 Year
  Sex: Female
  Weight: 104.5 kg

DRUGS (5)
  1. AVANDIA [Suspect]
     Indication: DIABETES MELLITUS
     Dosage: 8MG PER DAY
     Route: 048
     Dates: start: 20041218, end: 20070928
  2. METFORMIN HCL [Concomitant]
  3. GLYBURIDE [Concomitant]
  4. TOPROL-XL [Concomitant]
  5. METOPROLOL TARTRATE [Concomitant]

REACTIONS (3)
  - CARDIAC FAILURE CONGESTIVE [None]
  - CORONARY ARTERY DISEASE [None]
  - PAIN [None]
